FAERS Safety Report 24291562 (Version 1)
Quarter: 2024Q3

REPORT INFORMATION
  Report Type: Spontaneous
  Country: US (occurrence: None)
  Receive Date: 20240906
  Receipt Date: 20240906
  Transmission Date: 20241017
  Serious: No
  Sender: DOMPE FARMACEUTICI
  Company Number: US-FARMAPROD-202309-2791

PATIENT
  Age: 75 Year
  Sex: Female

DRUGS (1)
  1. OXERVATE [Suspect]
     Active Substance: CENEGERMIN-BKBJ
     Indication: Neurotrophic keratopathy
     Route: 047
     Dates: start: 20230906

REACTIONS (5)
  - Wrong technique in product usage process [Unknown]
  - Product dose omission issue [Unknown]
  - Therapy interrupted [Unknown]
  - Lacrimation increased [Unknown]
  - Inappropriate schedule of product administration [None]

NARRATIVE: CASE EVENT DATE: 20230906
